FAERS Safety Report 8958324 (Version 2)
Quarter: 2013Q1

REPORT INFORMATION
  Report Type: Spontaneous
  Country: IL (occurrence: IL)
  Receive Date: 20121210
  Receipt Date: 20130315
  Transmission Date: 20140127
  Serious: Yes (Hospitalization, Other)
  Sender: FDA-Public Use
  Company Number: IL-PERRIGO-12IL010349

PATIENT
  Age: 79 Year
  Sex: Female
  Weight: 56.3 kg

DRUGS (14)
  1. BIFONAZOLE [Suspect]
     Indication: PSORIASIS
     Dosage: UNK, UNK
     Route: 065
     Dates: start: 20120810, end: 20120814
  2. CICLOPIROX [Suspect]
     Indication: PSORIASIS
     Dosage: UNK, UNK
     Route: 065
     Dates: start: 20120810, end: 20120814
  3. DIFLUCORTOLONE VALERATE [Suspect]
     Indication: PSORIASIS
     Dosage: UNK, UNK
     Route: 065
     Dates: start: 20120810, end: 20120814
  4. BEVACIZUMAB [Suspect]
     Indication: OVARIAN CANCER
     Dosage: 900 MG, Q3 WEEKS
     Route: 042
     Dates: start: 20110809, end: 20120807
  5. BEVACIZUMAB [Suspect]
     Dosage: 900 MG, Q3 WEEKS
     Route: 042
     Dates: start: 20120905, end: 20121220
  6. CARBOPLATIN [Suspect]
     Indication: OVARIAN CANCER
     Dosage: 380 MG, Q3WEEKS
     Route: 042
     Dates: start: 20110809
  7. PACLITAXEL [Suspect]
     Indication: OVARIAN CANCER
     Dosage: 270 MG, Q3 WEEKS
     Route: 042
     Dates: start: 20110809
  8. BACITRACIN W/NEOMYCIN SULFATE/POLYMYXIN B [Concomitant]
     Indication: PRODUCT USED FOR UNKNOWN INDICATION
     Dosage: UNK, UNK
     Route: 061
     Dates: start: 20111009, end: 20120812
  9. CLOBETASOL PROPRIONATE [Concomitant]
     Indication: PRODUCT USED FOR UNKNOWN INDICATION
     Dosage: UNK, UNK
     Route: 061
     Dates: start: 20120513, end: 20120812
  10. BETAMETHASONE W/CALCIPOTRIOL [Concomitant]
     Indication: PRODUCT USED FOR UNKNOWN INDICATION
     Dosage: UNK, UNK
     Route: 061
     Dates: start: 20120724, end: 20120812
  11. HYDROCHLOROTHIAZIDE [Concomitant]
     Indication: PRODUCT USED FOR UNKNOWN INDICATION
     Dosage: 25 MG, QD
     Route: 048
  12. ENALAPRIL [Concomitant]
     Dosage: 25 MG, QD
     Route: 048
  13. BISOPROLOL [Concomitant]
     Indication: PRODUCT USED FOR UNKNOWN INDICATION
     Dosage: UNKNOWN
     Route: 065
  14. LERCANIDIPINE HYDROCHLORIDE [Concomitant]
     Indication: PRODUCT USED FOR UNKNOWN INDICATION
     Dosage: UNKNOWN
     Route: 065

REACTIONS (4)
  - Condition aggravated [Recovered/Resolved]
  - Application site pain [Unknown]
  - Drug ineffective [Unknown]
  - Nicotinic acid deficiency [Recovered/Resolved with Sequelae]
